FAERS Safety Report 19278941 (Version 1)
Quarter: 2021Q2

REPORT INFORMATION
  Report Type: Spontaneous
  Country: US (occurrence: US)
  Receive Date: 20210520
  Receipt Date: 20210520
  Transmission Date: 20210717
  Serious: Yes (Death)
  Sender: FDA-Public Use
  Company Number: US-CHURCH + DWIGHT CO., INC.-2110752

PATIENT
  Sex: Male

DRUGS (1)
  1. ARM AND HAMMER BAKING SODA [Suspect]
     Active Substance: SODIUM BICARBONATE
     Indication: ABDOMINAL DISCOMFORT

REACTIONS (2)
  - Abdominal discomfort [Fatal]
  - Death [Fatal]
